FAERS Safety Report 5917193-7 (Version None)
Quarter: 2008Q4

REPORT INFORMATION
  Report Type: 
  Country: None (occurrence: None)
  Receive Date: 20081014
  Receipt Date: 20081009
  Transmission Date: 20090506
  Serious: Yes (Life-Threatening, Hospitalization)
  Sender: FDA-Public Use
  Company Number: SE-BRISTOL-MYERS SQUIBB COMPANY-14349393

PATIENT
  Age: 45 Year
  Sex: Male

DRUGS (3)
  1. ERBITUX [Suspect]
     Indication: COLON CANCER
     Dates: start: 20080205, end: 20080616
  2. CAMPTOSAR [Concomitant]
     Indication: COLON CANCER
     Dates: start: 20070101
  3. FLUOROURACIL [Concomitant]
     Indication: COLON CANCER
     Dates: start: 20070101

REACTIONS (2)
  - ABDOMINAL PAIN [None]
  - GASTROINTESTINAL HAEMORRHAGE [None]
